FAERS Safety Report 8807838 (Version 2)
Quarter: 2012Q4

REPORT INFORMATION
  Report Type: 
  Country: US (occurrence: US)
  Receive Date: 20120925
  Receipt Date: 20121002
  Transmission Date: 20130627
  Serious: Yes (Congenital Anomaly)
  Sender: FDA-Public Use
  Company Number: US-GLAXOSMITHKLINE-A0994818A

PATIENT
  Age: 0 Year
  Sex: Male
  Weight: 2 kg

DRUGS (1)
  1. PAXIL [Suspect]
     Indication: DEPRESSION
     Dosage: 40MG Per day
     Route: 064

REACTIONS (8)
  - Heart disease congenital [Unknown]
  - Hypoplastic right heart syndrome [Unknown]
  - Congenital cardiovascular anomaly [Unknown]
  - Tricuspid valve incompetence [Unknown]
  - Patent ductus arteriosus [Unknown]
  - Pulmonary valve stenosis [Unknown]
  - Atrial septal defect [Unknown]
  - Foetal exposure during pregnancy [Unknown]
